FAERS Safety Report 12901844 (Version 2)
Quarter: 2016Q4

REPORT INFORMATION
  Report Type: Spontaneous
  Country: PA (occurrence: PA)
  Receive Date: 20161102
  Receipt Date: 20161124
  Transmission Date: 20170207
  Serious: Yes (Other)
  Sender: FDA-Public Use
  Company Number: PA-ROCHE-1848393

PATIENT
  Age: 49 Year
  Sex: Male
  Weight: 75 kg

DRUGS (7)
  1. DIPHENHYDRAMINE. [Concomitant]
     Active Substance: DIPHENHYDRAMINE
     Indication: PREMEDICATION
     Route: 042
     Dates: start: 20161017, end: 20161017
  2. HYDROCORTISONE. [Concomitant]
     Active Substance: HYDROCORTISONE
     Indication: PREMEDICATION
     Route: 042
     Dates: start: 20161017, end: 20161017
  3. ONCOVIN [Concomitant]
     Active Substance: VINCRISTINE SULFATE
     Route: 042
     Dates: start: 20161117, end: 20161117
  4. MABTHERA [Suspect]
     Active Substance: RITUXIMAB
     Indication: ACUTE LYMPHOCYTIC LEUKAEMIA
     Route: 058
     Dates: start: 20161017, end: 20161017
  5. METHOTREXATE. [Concomitant]
     Active Substance: METHOTREXATE
     Route: 042
     Dates: start: 20161017, end: 20161017
  6. GRANISETRON [Concomitant]
     Active Substance: GRANISETRON
     Indication: PREMEDICATION
     Route: 042
     Dates: start: 20161017, end: 20161017
  7. ASPARAGINASE [Concomitant]
     Active Substance: ASPARAGINASE
     Route: 030
     Dates: start: 20161017, end: 20161017

REACTIONS (6)
  - Skin exfoliation [Unknown]
  - Skin abrasion [Unknown]
  - Pain [Unknown]
  - Erythema [Unknown]
  - Ecchymosis [Unknown]
  - Off label use [Unknown]

NARRATIVE: CASE EVENT DATE: 20161017
